FAERS Safety Report 11929460 (Version 1)
Quarter: 2016Q1

REPORT INFORMATION
  Report Type: Spontaneous
  Country: DK (occurrence: DK)
  Receive Date: 20160120
  Receipt Date: 20160120
  Transmission Date: 20160526
  Serious: Yes (Hospitalization)
  Sender: FDA-Public Use
  Company Number: DK-ROCHE-1696735

PATIENT
  Age: 73 Year
  Sex: Female

DRUGS (15)
  1. ROACTEMRA [Suspect]
     Active Substance: TOCILIZUMAB
     Indication: TEMPORAL ARTERITIS
     Route: 058
     Dates: start: 20151110, end: 20151229
  2. JERN C [Concomitant]
     Dosage: IRON SUPPLEMENT
     Route: 065
  3. KALEORID [Concomitant]
     Active Substance: POTASSIUM CHLORIDE
     Indication: MINERAL SUPPLEMENTATION
     Route: 065
  4. PINEX (DENMARK) [Concomitant]
     Indication: PAIN
     Dosage: DOSE : IF NECCESARY
     Route: 065
  5. SIMVASTATIN. [Concomitant]
     Active Substance: SIMVASTATIN
     Indication: HYPERCHOLESTEROLAEMIA
     Route: 065
  6. PREDNISOLON [Concomitant]
     Active Substance: PREDNISOLONE
     Dosage: INDICATION : ADRENOCORTICAL HORMONE SUPPLEMENTATION
     Route: 065
  7. TOILAX [Concomitant]
     Active Substance: BISACODYL
     Indication: CONSTIPATION
     Route: 065
  8. ALENDRONATE [Concomitant]
     Active Substance: ALENDRONATE SODIUM
     Indication: OSTEOPOROSIS
     Route: 065
  9. OMEPRAZOL [Concomitant]
     Active Substance: OMEPRAZOLE
     Indication: GASTRIC ULCER
     Route: 065
  10. EBETREXAT [Concomitant]
     Active Substance: METHOTREXATE SODIUM
     Indication: TEMPORAL ARTERITIS
     Dosage: DOSE: 7.5 MG/WEEK TO 25 MG/WEEK. STRENGTH: 20 MG/ML.
     Route: 058
     Dates: start: 2009, end: 20151229
  11. HJERTEMAGNYL [Concomitant]
     Active Substance: ASPIRIN\MAGNESIUM OXIDE
     Indication: ANTICOAGULANT THERAPY
     Route: 065
  12. ACICLOVIR [Concomitant]
     Active Substance: ACYCLOVIR
     Indication: HERPES VIRUS INFECTION
     Route: 065
  13. KALIUMKLORID [Concomitant]
     Indication: MINERAL SUPPLEMENTATION
     Route: 065
  14. KLORAMFENIKOL [Concomitant]
     Indication: EYE INFECTION
     Route: 065
  15. OCULAC [Concomitant]
     Indication: DRY EYE
     Route: 065

REACTIONS (3)
  - Dizziness [Recovered/Resolved]
  - Pancytopenia [Recovered/Resolved]
  - Malaise [Recovered/Resolved]

NARRATIVE: CASE EVENT DATE: 20151229
